FAERS Safety Report 24195870 (Version 2)
Quarter: 2024Q3

REPORT INFORMATION
  Report Type: Spontaneous
  Country: US (occurrence: US)
  Receive Date: 20240809
  Receipt Date: 20240909
  Transmission Date: 20241016
  Serious: No
  Sender: MYLAN
  Company Number: US-MYLANLABS-2024M1073672

PATIENT
  Sex: Male

DRUGS (1)
  1. LYRICA [Suspect]
     Active Substance: PREGABALIN
     Indication: Neuropathy peripheral
     Dosage: 200 MILLIGRAM, TID (3 TIMES A DAY)
     Route: 065

REACTIONS (3)
  - Discomfort [Unknown]
  - Dizziness [Recovered/Resolved]
  - Drug effect less than expected [Unknown]
